FAERS Safety Report 16927210 (Version 1)
Quarter: 2019Q4

REPORT INFORMATION
  Report Type: Spontaneous
  Country: NZ (occurrence: NZ)
  Receive Date: 20191016
  Receipt Date: 20191016
  Transmission Date: 20200122
  Serious: Yes (Other)
  Sender: FDA-Public Use
  Company Number: NVSC2019NZ002979

PATIENT
  Age: 64 Year
  Sex: Male

DRUGS (8)
  1. CILAZAPRIL [Suspect]
     Active Substance: CILAZAPRIL ANHYDROUS
     Dosage: 5 MG, QD
     Route: 065
  2. ATORVASTATIN [Suspect]
     Active Substance: ATORVASTATIN
     Dosage: 40 MG, QD
     Route: 065
  3. ATORVASTATIN [Suspect]
     Active Substance: ATORVASTATIN
     Indication: PRODUCT USED FOR UNKNOWN INDICATION
     Dosage: 20 MG, QD
     Route: 065
  4. METOPROLOL. [Suspect]
     Active Substance: METOPROLOL
     Indication: PRODUCT USED FOR UNKNOWN INDICATION
     Dosage: 23.75 MG, QD
     Route: 065
  5. ASPIRIN. [Suspect]
     Active Substance: ASPIRIN
     Indication: PRODUCT USED FOR UNKNOWN INDICATION
     Dosage: 100 MG, QD
     Route: 065
  6. METOPROLOL. [Suspect]
     Active Substance: METOPROLOL
     Dosage: 190 MG, QD
     Route: 065
  7. CILAZAPRIL [Suspect]
     Active Substance: CILAZAPRIL ANHYDROUS
     Indication: PRODUCT USED FOR UNKNOWN INDICATION
     Dosage: 0.5 MG, QD
     Route: 065
  8. ATORVASTATIN [Suspect]
     Active Substance: ATORVASTATIN
     Dosage: 80 MG, QD
     Route: 065

REACTIONS (8)
  - Electrocardiogram QRS complex shortened [Unknown]
  - Myocardial infarction [Unknown]
  - Blood pressure increased [Unknown]
  - Crepitations [Unknown]
  - Exercise tolerance decreased [Unknown]
  - Dilatation ventricular [Unknown]
  - Ventricular dyskinesia [Unknown]
  - Cardiac failure chronic [Unknown]
